FAERS Safety Report 7960917-8 (Version None)
Quarter: 2011Q4

REPORT INFORMATION
  Report Type: 
  Country: None (occurrence: None)
  Receive Date: 20111201
  Receipt Date: 20111201
  Transmission Date: 20120403
  Serious: Yes (Hospitalization, Other)
  Sender: FDA-Public Use
  Company Number: None

PATIENT
  Age: 39 Year
  Sex: Female
  Weight: 58.9676 kg

DRUGS (1)
  1. NUVARING [Suspect]
     Indication: MENORRHAGIA
     Dosage: 1/MONTH VAGINAL
     Route: 067
     Dates: start: 20110911, end: 20110919

REACTIONS (4)
  - DIPLOPIA [None]
  - MIGRAINE [None]
  - ABDOMINAL DISTENSION [None]
  - PARAESTHESIA [None]
